FAERS Safety Report 5951070-0 (Version None)
Quarter: 2008Q4

REPORT INFORMATION
  Report Type: 
  Country: None (occurrence: None)
  Receive Date: 20081111
  Receipt Date: 20081111
  Transmission Date: 20090506
  Serious: Yes (Life-Threatening, Hospitalization)
  Sender: FDA-Public Use
  Company Number: None

PATIENT
  Age: 21 Year
  Sex: Female
  Weight: 74.8435 kg

DRUGS (2)
  1. YASMIN [Suspect]
     Indication: CONTRACEPTION
     Dosage: 3.0 MG AND 0.030 MG ONCE A DAY PO
     Route: 048
     Dates: start: 20071001, end: 20080810
  2. OCELLA DROSPIRENONE AND ETHINYL ESTRADIOL BAYER [Suspect]
     Indication: CONTRACEPTION
     Dosage: 3.0 MG AND 0.030 MG ONCE A DAY PO
     Route: 048
     Dates: start: 20080817, end: 20080827

REACTIONS (3)
  - ACTIVITIES OF DAILY LIVING IMPAIRED [None]
  - DEEP VEIN THROMBOSIS [None]
  - PULMONARY EMBOLISM [None]
